FAERS Safety Report 21830391 (Version 4)
Quarter: 2023Q1

REPORT INFORMATION
  Report Type: Spontaneous
  Country: PL (occurrence: PL)
  Receive Date: 20230106
  Receipt Date: 20230216
  Transmission Date: 20230418
  Serious: Yes (Life-Threatening, Hospitalization, Other)
  Sender: FDA-Public Use
  Company Number: PL-CELONPHARMA-54_QUETIAPINE_2022

PATIENT
  Age: 70 Year
  Sex: Female

DRUGS (22)
  1. QUETIAPINE [Suspect]
     Active Substance: QUETIAPINE
     Indication: Aggression
     Dosage: 25 MILLIGRAM, QD, 25 MG OVERNIGHT
     Route: 065
  2. QUETIAPINE [Suspect]
     Active Substance: QUETIAPINE
     Indication: Delusion
  3. HALOPERIDOL [Suspect]
     Active Substance: HALOPERIDOL
     Indication: Delusion
     Dosage: TOTAL DOSE - 30 MG, DURING NIGHT SHIFT
     Route: 065
  4. HALOPERIDOL [Suspect]
     Active Substance: HALOPERIDOL
     Indication: Aggression
  5. BENSERAZIDE\LEVODOPA [Concomitant]
     Active Substance: BENSERAZIDE\LEVODOPA
     Indication: Parkinson^s disease
     Dosage: 62.5 MILLIGRAM, Q8H
     Route: 065
  6. BENSERAZIDE\LEVODOPA [Concomitant]
     Active Substance: BENSERAZIDE\LEVODOPA
     Dosage: 500 MILLIGRAM, QD (TOTAL DOSE OF 500 MG DAILY)
     Route: 065
  7. CLOZAPINE [Concomitant]
     Active Substance: CLOZAPINE
     Indication: Delusion
     Dosage: 25MG, QD, ADMINISTERED OVERNIGHT
     Route: 065
  8. CLOZAPINE [Concomitant]
     Active Substance: CLOZAPINE
     Indication: Moaning
     Dosage: BID,INCREASED TO 25MG MORNING,50 MG EVENING
     Route: 065
  9. ROPINIROLE [Concomitant]
     Active Substance: ROPINIROLE
     Indication: Parkinson^s disease
     Dosage: 4 MG PER DAY
     Route: 065
  10. AMANTADINE [Concomitant]
     Active Substance: AMANTADINE
     Indication: Parkinson^s disease
     Dosage: 100 MILLIGRAM, BID (100 MG TWICE DAILY)
     Route: 065
  11. AMANTADINE [Concomitant]
     Active Substance: AMANTADINE
     Indication: Neuroleptic malignant syndrome
     Dosage: 100 MILLIGRAM, BID
     Route: 065
  12. METOPROLOL [Interacting]
     Active Substance: METOPROLOL
     Indication: Cardiac disorder
     Dosage: 25 MG PER DAY
     Route: 065
  13. TRAZODONE [Interacting]
     Active Substance: TRAZODONE HYDROCHLORIDE
     Indication: Insomnia
     Dosage: 75 MG PER DAY
     Route: 065
  14. SELEGILINE [Interacting]
     Active Substance: SELEGILINE
     Indication: Parkinson^s disease
     Dosage: 5 MILLIGRAM, QD (5 MG ONCE DAILY)
     Route: 065
  15. CLONAZEPAM [Concomitant]
     Active Substance: CLONAZEPAM
     Indication: Delusion
     Dosage: 20 MG, QD DURING NIGHT SHIFT
     Route: 065
  16. CLONAZEPAM [Concomitant]
     Active Substance: CLONAZEPAM
     Indication: Aggression
  17. LORAZEPAM [Concomitant]
     Active Substance: LORAZEPAM
     Indication: Moaning
     Dosage: 1 MG-1MG-2MG
     Route: 065
  18. LORAZEPAM [Concomitant]
     Active Substance: LORAZEPAM
     Indication: Delusion
  19. MIDAZOLAM [Concomitant]
     Active Substance: MIDAZOLAM
     Indication: Neuroleptic malignant syndrome
     Dosage: 50 MG IN 50 ML 0.9% NACL AT A DOSE OF 2 ML/H
     Route: 065
  20. DIAZEPAM [Concomitant]
     Active Substance: DIAZEPAM
     Indication: Aggression
     Dosage: 20 MG, QD , DURING NIGHT SHIFT
     Route: 065
  21. DIAZEPAM [Concomitant]
     Active Substance: DIAZEPAM
     Indication: Delusion
  22. OXYGEN [Concomitant]
     Active Substance: OXYGEN
     Dosage: UNK
     Route: 065

REACTIONS (14)
  - Neuroleptic malignant syndrome [Unknown]
  - Therapy non-responder [Unknown]
  - Immobile [Unknown]
  - Musculoskeletal stiffness [Unknown]
  - Pneumonia [Unknown]
  - Rapid eye movement sleep behaviour disorder [Unknown]
  - Serotonin syndrome [Unknown]
  - Mutism [Unknown]
  - Hypersensitivity [Unknown]
  - Body temperature increased [Unknown]
  - Tachycardia [Unknown]
  - Abnormal dreams [Unknown]
  - Drug interaction [Unknown]
  - Product use issue [Unknown]
